FAERS Safety Report 6768052-1 (Version None)
Quarter: 2010Q2

REPORT INFORMATION
  Report Type: 
  Country: None (occurrence: None)
  Receive Date: 20100614
  Receipt Date: 20100601
  Transmission Date: 20101027
  Serious: Yes (Death)
  Sender: FDA-Public Use
  Company Number: B0659775A

PATIENT

DRUGS (3)
  1. BUSULPHAN [Suspect]
     Indication: EWING'S SARCOMA
     Dosage: 16MGK PER DAY
     Route: 048
  2. MELPHALAN HYDROCHLORIDE [Suspect]
     Indication: EWING'S SARCOMA
     Dosage: 140MGM2 PER DAY
     Route: 042
  3. CLONAZEPAM [Concomitant]
     Dosage: .03MGKD PER DAY
     Route: 042

REACTIONS (4)
  - BONE MARROW FAILURE [None]
  - ENGRAFTMENT SYNDROME [None]
  - FEBRILE NEUTROPENIA [None]
  - MUCOSAL INFLAMMATION [None]
